FAERS Safety Report 6011888-5 (Version None)
Quarter: 2008Q4

REPORT INFORMATION
  Report Type: 
  Country: None (occurrence: None)
  Receive Date: 20081218
  Receipt Date: 20081026
  Transmission Date: 20090506
  Serious: No
  Sender: FDA-Public Use
  Company Number: US-ASTRAZENECA-2008UW20635

PATIENT
  Age: 81 Year
  Sex: Male
  Weight: 74.8 kg

DRUGS (3)
  1. CRESTOR [Suspect]
     Route: 048
     Dates: start: 20060101, end: 20071101
  2. CRESTOR [Suspect]
     Route: 048
     Dates: start: 20071201
  3. METOPROLOL TARTRATE [Concomitant]
     Indication: TACHYCARDIA

REACTIONS (1)
  - LOW DENSITY LIPOPROTEIN INCREASED [None]
